FAERS Safety Report 20616307 (Version 1)
Quarter: 2022Q1

REPORT INFORMATION
  Report Type: Spontaneous
  Country: US (occurrence: None)
  Receive Date: 20220318
  Receipt Date: 20220318
  Transmission Date: 20220423
  Serious: Yes (Life-Threatening)
  Sender: FDA-Public Use
  Company Number: None

PATIENT
  Age: 47 Year
  Sex: Female
  Weight: 52.9 kg

DRUGS (1)
  1. OCREVUS [Suspect]
     Active Substance: OCRELIZUMAB
     Indication: Multiple sclerosis
     Dates: start: 20210517, end: 20220318

REACTIONS (10)
  - Throat irritation [None]
  - Ear pruritus [None]
  - Infusion related reaction [None]
  - Hypersensitivity [None]
  - Chest pain [None]
  - Hyperventilation [None]
  - Tachycardia [None]
  - Feeling hot [None]
  - Dyspnoea [None]
  - Rash [None]

NARRATIVE: CASE EVENT DATE: 20220317
